FAERS Safety Report 4282043-4 (Version None)
Quarter: 2004Q1

REPORT INFORMATION
  Report Type: 
  Country: None (occurrence: None)
  Receive Date: 20040130
  Receipt Date: 20040121
  Transmission Date: 20041129
  Serious: Yes (Hospitalization)
  Sender: FDA-Public Use
  Company Number: US-BRISTOL-MYERS SQUIBB COMPANY-12482311

PATIENT
  Age: 78 Year
  Sex: Male
  Weight: 72 kg

DRUGS (12)
  1. PACLITAXEL [Suspect]
     Indication: NON-SMALL CELL LUNG CANCER
     Dosage: CYCLES 4 AND 5 DOSE: 175 MG/M2
     Route: 042
     Dates: start: 20030617, end: 20030910
  2. CARBOPLATIN [Suspect]
     Dosage: CYCLES 1 TO 3: DOSE AUC 6  CYCLES 4 AND 5: DOSE AUC 5
     Route: 042
     Dates: start: 20030617, end: 20030910
  3. CLONIDINE [Concomitant]
  4. METOPROLOL [Concomitant]
  5. CLARITIN-D [Concomitant]
  6. CELEBREX [Concomitant]
  7. ASPIRIN [Concomitant]
  8. COMPAZINE [Concomitant]
  9. MEGACE [Concomitant]
  10. PROCRIT [Concomitant]
  11. TYLOX [Concomitant]
  12. NEULASTA [Concomitant]

REACTIONS (2)
  - DEHYDRATION [None]
  - RENAL FAILURE ACUTE [None]
